FAERS Safety Report 4335977-6 (Version None)
Quarter: 2004Q2

REPORT INFORMATION
  Report Type: 
  Country: None (occurrence: None)
  Receive Date: 20040406
  Receipt Date: 20040325
  Transmission Date: 20050107
  Serious: Yes (Disabling)
  Sender: FDA-Public Use
  Company Number: 04P-056-0254972-00

PATIENT
  Age: 30 Month
  Sex: Female
  Weight: 15 kg

DRUGS (4)
  1. NORVIR [Suspect]
  2. DIDANOSINE [Suspect]
  3. LAMIVUDINE [Suspect]
  4. NEVIRAPINE [Concomitant]

REACTIONS (4)
  - GASTROINTESTINAL DISORDER [None]
  - MATERNAL DRUGS AFFECTING FOETUS [None]
  - RETINOBLASTOMA [None]
  - STRABISMUS [None]
